FAERS Safety Report 14060815 (Version 2)
Quarter: 2017Q4

REPORT INFORMATION
  Report Type: Report from Study
  Country: US (occurrence: US)
  Receive Date: 20171009
  Receipt Date: 20171031
  Transmission Date: 20180321
  Serious: Yes (Other)
  Sender: FDA-Public Use
  Company Number: PHEH2017US031982

PATIENT
  Sex: Female
  Weight: 68.13 kg

DRUGS (2)
  1. CITRUCEL [Concomitant]
     Active Substance: METHYLCELLULOSE (4000 MPA.S)
     Indication: BOWEL MOVEMENT IRREGULARITY
     Dosage: UNK
     Route: 065
  2. COSENTYX [Suspect]
     Active Substance: SECUKINUMAB
     Indication: PSORIASIS
     Dosage: 300 MG, QMO
     Route: 058

REACTIONS (8)
  - Vomiting [Unknown]
  - Weight increased [Unknown]
  - Dysphagia [Unknown]
  - Oesophageal stenosis [Unknown]
  - Oropharyngeal pain [Unknown]
  - Concomitant disease aggravated [Unknown]
  - Omphalitis [Recovered/Resolved]
  - Hiatus hernia [Unknown]
